FAERS Safety Report 22028464 (Version 1)
Quarter: 2023Q1

REPORT INFORMATION
  Report Type: Spontaneous
  Country: US (occurrence: None)
  Receive Date: 20230223
  Receipt Date: 20230223
  Transmission Date: 20230417
  Serious: Yes (Other)
  Sender: FDA-Public Use
  Company Number: US-ROCHE-3227064

PATIENT
  Age: 13 Year
  Sex: Male
  Weight: 41.7 kg

DRUGS (10)
  1. NUTROPIN AQ [Suspect]
     Active Substance: SOMATROPIN
     Indication: Chronic kidney disease
     Dosage: ONGOING: YES
     Route: 058
     Dates: start: 20220105, end: 20220110
  2. NUTROPIN AQ [Suspect]
     Active Substance: SOMATROPIN
     Indication: Growth failure
  3. AMLODIPINE [Concomitant]
     Active Substance: AMLODIPINE BESYLATE
     Indication: Hypertension
     Route: 048
  4. CALCITRIOL [Concomitant]
     Active Substance: CALCITRIOL
     Indication: Chronic kidney disease
     Route: 048
  5. CARVEDILOL [Concomitant]
     Active Substance: CARVEDILOL
     Indication: Hypertension
     Route: 048
  6. DARBEPOETIN ALFA [Concomitant]
     Active Substance: DARBEPOETIN ALFA
     Dosage: 25 MG/ML
     Route: 058
  7. IRON [Concomitant]
     Active Substance: IRON
     Indication: Chronic kidney disease
     Route: 048
  8. IRON [Concomitant]
     Active Substance: IRON
     Indication: Iron deficiency
  9. POTASSIUM CHLORIDE [Concomitant]
     Active Substance: POTASSIUM CHLORIDE
     Indication: Chronic kidney disease
     Route: 048
  10. VITAMIN B2 [Concomitant]
     Active Substance: RIBOFLAVIN
     Indication: Headache
     Route: 048

REACTIONS (1)
  - Intracranial pressure increased [Recovering/Resolving]

NARRATIVE: CASE EVENT DATE: 20221104
